FAERS Safety Report 22592102 (Version 5)
Quarter: 2023Q4

REPORT INFORMATION
  Report Type: Spontaneous
  Country: CA (occurrence: CA)
  Receive Date: 20230612
  Receipt Date: 20231201
  Transmission Date: 20240110
  Serious: Yes (Hospitalization, Other)
  Sender: FDA-Public Use
  Company Number: CA-CELLTRION INC.-2023CA002431

PATIENT

DRUGS (4)
  1. INFLECTRA [Suspect]
     Active Substance: INFLIXIMAB-DYYB
     Indication: Colitis ulcerative
     Dosage: 375 MG (5 MG/KG), EVERY 7 WEEK
     Route: 042
     Dates: start: 20230417
  2. INFLECTRA [Suspect]
     Active Substance: INFLIXIMAB-DYYB
     Dosage: 375 MG (5 MG/KG), EVERY 7 WEEK
     Route: 042
     Dates: start: 20230417
  3. INFLECTRA [Suspect]
     Active Substance: INFLIXIMAB-DYYB
     Dosage: 370 MG AFTER 9 WEEKS AND 1 DAY
     Route: 042
     Dates: start: 20230620
  4. INFLECTRA [Suspect]
     Active Substance: INFLIXIMAB-DYYB
     Dosage: 365 MG, (5 MG/KG), 22 WEEKS AND 1 DAY (EVERY 7 WEEKS)
     Route: 042
     Dates: start: 20231122

REACTIONS (13)
  - Nephrolithiasis [Recovered/Resolved]
  - Condition aggravated [Unknown]
  - Cardiac disorder [Unknown]
  - Hernia [Unknown]
  - Cerebrovascular accident [Unknown]
  - Parkinson^s disease [Unknown]
  - Pollakiuria [Unknown]
  - Fall [Recovering/Resolving]
  - Off label use [Unknown]
  - Eye infection [Unknown]
  - Malaise [Unknown]
  - Limb discomfort [Unknown]
  - Tremor [Unknown]

NARRATIVE: CASE EVENT DATE: 20230101
